FAERS Safety Report 10008456 (Version 1)
Quarter: 2014Q1

REPORT INFORMATION
  Report Type: Report from Study
  Country: BR (occurrence: BR)
  Receive Date: 20140313
  Receipt Date: 20140313
  Transmission Date: 20141002
  Serious: Yes (Other)
  Sender: FDA-Public Use
  Company Number: BR-BRISTOL-MYERS SQUIBB COMPANY-20384301

PATIENT
  Age: 23 Year
  Sex: Female

DRUGS (5)
  1. REYATAZ [Suspect]
     Indication: ANTIRETROVIRAL THERAPY
     Route: 048
     Dates: start: 20131127
  2. NORVIR [Suspect]
     Indication: ANTIRETROVIRAL THERAPY
     Route: 048
     Dates: start: 20131127
  3. TRUVADA [Suspect]
     Indication: ANTIRETROVIRAL THERAPY
     Dosage: TABS/CAPS?TOTAL DAILY DOSE 1
     Route: 048
     Dates: start: 20131127
  4. COMBIVIR [Suspect]
     Indication: ANTIRETROVIRAL THERAPY
     Dosage: TABS/CAPS?TOTAL DAILY DOSE 2
     Route: 048
     Dates: start: 20120702, end: 20131126
  5. KALETRA [Suspect]
     Indication: ANTIRETROVIRAL THERAPY
     Dosage: TABS/CAPS?TOTAL DAILY DOSE 4
     Route: 048
     Dates: start: 20120702, end: 20131126

REACTIONS (3)
  - Abortion spontaneous [Unknown]
  - Abdominal injury [Unknown]
  - Maternal exposure during pregnancy [Recovered/Resolved]
